FAERS Safety Report 16531572 (Version 1)
Quarter: 2019Q3

REPORT INFORMATION
  Report Type: Spontaneous
  Country: US (occurrence: US)
  Receive Date: 20190704
  Receipt Date: 20190704
  Transmission Date: 20191004
  Serious: No
  Sender: FDA-Public Use
  Company Number: US-GLAXOSMITHKLINE-US2019120105

PATIENT
  Age: 45 Year
  Sex: Male

DRUGS (6)
  1. VIVITROL [Suspect]
     Active Substance: NALTREXONE
     Indication: DRUG DEPENDENCE
  2. VOLTAREN [Suspect]
     Active Substance: DICLOFENAC SODIUM
     Indication: HEAD INJURY
     Dosage: UNK
     Route: 065
     Dates: start: 201905, end: 201905
  3. GABAPENTIN. [Suspect]
     Active Substance: GABAPENTIN
     Indication: HEAD INJURY
     Dosage: UNK
     Route: 065
     Dates: start: 201905, end: 201905
  4. ANTABUS [Concomitant]
     Active Substance: DISULFIRAM
     Indication: PRODUCT USED FOR UNKNOWN INDICATION
     Dosage: UNK
     Route: 065
  5. SOMA [Suspect]
     Active Substance: CARISOPRODOL
     Indication: HEAD INJURY
     Dosage: UNK
     Route: 065
     Dates: start: 201905, end: 201905
  6. VIVITROL [Suspect]
     Active Substance: NALTREXONE
     Indication: ALCOHOLISM
     Dosage: 380 MG, QMO
     Route: 030

REACTIONS (1)
  - Malaise [Unknown]

NARRATIVE: CASE EVENT DATE: 20190515
